FAERS Safety Report 20818879 (Version 1)
Quarter: 2022Q2

REPORT INFORMATION
  Report Type: Report from Study
  Country: FR (occurrence: FR)
  Receive Date: 20220512
  Receipt Date: 20220512
  Transmission Date: 20220721
  Serious: Yes (Hospitalization, Other)
  Sender: FDA-Public Use
  Company Number: FR-EMA-DD-20220422-7180171-093321

PATIENT
  Age: 52 Year
  Sex: Male
  Weight: 94 kg

DRUGS (4)
  1. LENALIDOMIDE [Suspect]
     Active Substance: LENALIDOMIDE
     Indication: Product used for unknown indication
     Dosage: 25 MILLIGRAM DAILY; 25 MG, QD , ROUTE OF ADMINISTRATION : ORAL , THERAPY END DATE : ASKU
     Route: 048
     Dates: start: 20220301
  2. DEXAMETHASONE [Suspect]
     Active Substance: DEXAMETHASONE
     Indication: Product used for unknown indication
     Dosage: 40 MILLIGRAM DAILY; 40 MG, QD , ROUTE OF ADMINISTRATION : ORAL , THERAPY END DATE : ASKU
     Route: 048
     Dates: start: 20220228
  3. CARFILZOMIB [Suspect]
     Active Substance: CARFILZOMIB
     Indication: Product used for unknown indication
     Dosage: 20 MG/M2, FREQUENCY: 30 MINS, ROUTE OF ADMINISTRATION : INTRAVENOUS (NOT OTHERWISE SPECIFIED) , UNIT
     Route: 042
     Dates: start: 20220228, end: 20220228
  4. ISATUXIMAB [Suspect]
     Active Substance: ISATUXIMAB
     Indication: Product used for unknown indication
     Dosage: 25 ML/H TO 50 ML/H, ROUTE OF ADMINISTRATION : INTRAVENOUS (NOT OTHERWISE SPECIFIED) , UNIT DOSE : 10
     Route: 042
     Dates: start: 20220228, end: 20220301

REACTIONS (1)
  - Acute kidney injury [Recovered/Resolved]

NARRATIVE: CASE EVENT DATE: 20220303
